FAERS Safety Report 16304763 (Version 1)
Quarter: 2019Q2

REPORT INFORMATION
  Report Type: Spontaneous
  Country: US (occurrence: US)
  Receive Date: 20190510
  Receipt Date: 20190510
  Transmission Date: 20190711
  Serious: Yes (Hospitalization)
  Sender: FDA-Public Use
  Company Number: None

PATIENT
  Age: 15 Year
  Sex: Male
  Weight: 64.8 kg

DRUGS (2)
  1. VALACYCLOVIR 1000 MG [Concomitant]
     Dates: start: 20190312, end: 20190318
  2. SULFAMETHOXAZOLE/TRIMETHOPRIM [Suspect]
     Active Substance: SULFAMETHOXAZOLE\TRIMETHOPRIM
     Indication: CELLULITIS
     Route: 048
     Dates: start: 20190312, end: 20190322

REACTIONS (5)
  - Pyrexia [None]
  - Hypersensitivity [None]
  - Oral mucosal blistering [None]
  - Rash vesicular [None]
  - Rash generalised [None]

NARRATIVE: CASE EVENT DATE: 20190327
